FAERS Safety Report 5136461-2 (Version None)
Quarter: 2006Q4

REPORT INFORMATION
  Report Type: 
  Country: None (occurrence: None)
  Receive Date: 20061027
  Receipt Date: 20060815
  Transmission Date: 20070319
  Serious: No
  Sender: FDA-Public Use
  Company Number: US-BRISTOL-MYERS SQUIBB COMPANY-13474853

PATIENT
  Age: 4 Year
  Sex: Male

DRUGS (2)
  1. KENALOG-40 [Suspect]
     Indication: HYPERSENSITIVITY
     Route: 030
     Dates: start: 20060301
  2. AMOXICILLIN [Concomitant]

REACTIONS (2)
  - INJECTION SITE ATROPHY [None]
  - SKIN DISCOLOURATION [None]
